FAERS Safety Report 21215746 (Version 2)
Quarter: 2022Q3

REPORT INFORMATION
  Report Type: Spontaneous
  Country: US (occurrence: US)
  Receive Date: 20220816
  Receipt Date: 20220914
  Transmission Date: 20221027
  Serious: No
  Sender: FDA-Public Use
  Company Number: US-AIMMUNE THERAPEUTICS, INC.-2022AIMT00610

PATIENT

DRUGS (3)
  1. PALFORZIA [Suspect]
     Active Substance: PEANUT
     Indication: Food allergy
     Dosage: IDE, ONLY 0.5 MG RECEIVED ONCE; FIRST AND LAST DOSE PRIOR TO EVENTS
     Route: 048
     Dates: start: 20220810, end: 20220810
  2. PULMICORT TURBUHALER [Concomitant]
     Active Substance: BUDESONIDE
     Indication: Asthma
     Dosage: 90 MICROGRAMS, 2 PUFFS TWICE A DAY AS NEEDED
     Dates: start: 2012
  3. ALBUTEROL [Concomitant]
     Active Substance: ALBUTEROL
     Indication: Asthma
     Dosage: 90 MICROGRAMS, AS NEEDED FOR SYMPTOMS
     Dates: start: 2010

REACTIONS (2)
  - Oral pruritus [Recovered/Resolved]
  - Throat irritation [Recovered/Resolved]

NARRATIVE: CASE EVENT DATE: 20220810
